FAERS Safety Report 7623735-6 (Version None)
Quarter: 2011Q3

REPORT INFORMATION
  Report Type: 
  Country: None (occurrence: None)
  Receive Date: 20110720
  Receipt Date: 20110718
  Transmission Date: 20111222
  Serious: Yes (Hospitalization)
  Sender: FDA-Public Use
  Company Number: US-GLAXOSMITHKLINE-A0937041A

PATIENT
  Age: 65 Year
  Sex: Male
  Weight: 119.5 kg

DRUGS (2)
  1. AVANDIA [Suspect]
     Indication: DIABETES MELLITUS
     Dosage: 4MG PER DAY
     Route: 048
     Dates: start: 20040501, end: 20070606
  2. AVANDAMET [Suspect]
     Indication: DIABETES MELLITUS

REACTIONS (4)
  - PAIN IN EXTREMITY [None]
  - CORONARY ARTERY OCCLUSION [None]
  - PAIN [None]
  - MYOCARDIAL INFARCTION [None]
